FAERS Safety Report 15790330 (Version 2)
Quarter: 2019Q1

REPORT INFORMATION
  Report Type: Spontaneous
  Country: US (occurrence: US)
  Receive Date: 20190104
  Receipt Date: 20190324
  Transmission Date: 20190417
  Serious: Yes (Hospitalization, Disabling, Other)
  Sender: FDA-Public Use
  Company Number: US-009507513-1812USA006693

PATIENT
  Age: 37 Year
  Sex: Male
  Weight: 90.07 kg

DRUGS (7)
  1. ASCORBIC ACID. [Concomitant]
     Active Substance: ASCORBIC ACID
     Dosage: 500 MILLIGRAM, QD
     Route: 048
  2. MILK THISTLE [Concomitant]
     Active Substance: DIETARY SUPPLEMENT\HERBALS\MILK THISTLE
     Dosage: 150 MILLIGRAM, 2 A DAY
     Route: 048
  3. CHOLECALCIFEROL [Concomitant]
     Active Substance: CHOLECALCIFEROL
     Dosage: 1000 UNITS
     Route: 048
  4. KEYTRUDA [Suspect]
     Active Substance: PEMBROLIZUMAB
     Indication: GANGLIONEUROMA
     Dosage: 100 MILLIGRAM
     Route: 042
     Dates: start: 20190208
  5. TURMERIC [Concomitant]
     Active Substance: HERBALS\TURMERIC
     Route: 048
  6. KEYTRUDA [Suspect]
     Active Substance: PEMBROLIZUMAB
     Indication: BRAIN NEOPLASM MALIGNANT
     Dosage: 25MG/ML; 200 MILLIGRAM Q3W
     Route: 042
     Dates: start: 20181120, end: 20181211
  7. VITAMIN E [Concomitant]
     Active Substance: .ALPHA.-TOCOPHEROL
     Dosage: 1000 UNITS QD
     Route: 048

REACTIONS (10)
  - Blood glucose increased [Not Recovered/Not Resolved]
  - Blood chloride increased [Recovered/Resolved]
  - Blood creatinine decreased [Recovered/Resolved]
  - Blood sodium increased [Recovered/Resolved]
  - Toxicity to various agents [Recovered/Resolved with Sequelae]
  - Drug-induced liver injury [Recovered/Resolved with Sequelae]
  - Disturbance in attention [Unknown]
  - Albumin globulin ratio increased [Recovered/Resolved]
  - Hepatitis A antibody positive [Unknown]
  - Headache [Recovered/Resolved]

NARRATIVE: CASE EVENT DATE: 2018
